FAERS Safety Report 10882944 (Version 1)
Quarter: 2015Q1

REPORT INFORMATION
  Report Type: Spontaneous
  Country: US (occurrence: US)
  Receive Date: 20150303
  Receipt Date: 20150303
  Transmission Date: 20150721
  Serious: Yes (Other)
  Sender: FDA-Public Use
  Company Number: US-TEVA-543505USA

PATIENT
  Sex: Female

DRUGS (1)
  1. COPAXONE [Suspect]
     Active Substance: GLATIRAMER ACETATE
     Indication: MULTIPLE SCLEROSIS
     Dosage: UNKNOWN FORM STRENGTH

REACTIONS (8)
  - Palpitations [Unknown]
  - Anaemia [Unknown]
  - Neoplasm [Unknown]
  - Lactose intolerance [Unknown]
  - Lymphoma [Unknown]
  - Malaise [Unknown]
  - Weight decreased [Unknown]
  - Weight fluctuation [Unknown]
